FAERS Safety Report 5982034-9 (Version None)
Quarter: 2008Q4

REPORT INFORMATION
  Report Type: 
  Country: None (occurrence: None)
  Receive Date: 20081202
  Receipt Date: 20081124
  Transmission Date: 20090506
  Serious: Yes (Other)
  Sender: FDA-Public Use
  Company Number: 2008SP021650

PATIENT
  Age: 24 Year
  Sex: Female

DRUGS (5)
  1. PEG-INTRON [Suspect]
     Indication: HEPATITIS C
     Dosage: 80 MCG; SC
     Route: 058
     Dates: end: 20080428
  2. RIBAVIRIN [Suspect]
     Indication: HEPATITIS C
     Dosage: 800 MG;QD;PO
     Route: 048
     Dates: end: 20080428
  3. PREDNISONE TAB [Concomitant]
  4. AMBIEN [Concomitant]
  5. IBUPROFEN [Concomitant]

REACTIONS (2)
  - NEUTROPENIA [None]
  - PERIPHERAL T-CELL LYMPHOMA UNSPECIFIED [None]
